FAERS Safety Report 24711020 (Version 1)
Quarter: 2024Q4

REPORT INFORMATION
  Report Type: Spontaneous
  Country: SE (occurrence: SE)
  Receive Date: 20241209
  Receipt Date: 20241209
  Transmission Date: 20250115
  Serious: Yes (Other)
  Sender: TEVA
  Company Number: SE-TEVA-VS-3266728

PATIENT
  Age: 14 Year
  Sex: Male

DRUGS (1)
  1. ISOTRETINOIN [Suspect]
     Active Substance: ISOTRETINOIN
     Indication: Acne
     Dosage: ISOTRETINOIN ACTAVIS
     Route: 065
     Dates: end: 20220810

REACTIONS (2)
  - Growth retardation [Unknown]
  - Meibomian gland dysfunction [Unknown]

NARRATIVE: CASE EVENT DATE: 20210910
